FAERS Safety Report 5037585-0 (Version None)
Quarter: 2006Q2

REPORT INFORMATION
  Report Type: 
  Country: None (occurrence: None)
  Receive Date: 20060607
  Receipt Date: 20060418
  Transmission Date: 20061013
  Serious: No
  Sender: FDA-Public Use
  Company Number: 34524

PATIENT
  Sex: 0

DRUGS (3)
  1. NEVANAC [Suspect]
     Indication: PROPHYLAXIS
     Dates: start: 20060101
  2. ECONOPRED PLUS SUSPENSION [Suspect]
     Indication: PROPHYLAXIS
     Dates: start: 20060101
  3. LOTEMAX [Concomitant]

REACTIONS (1)
  - SWELLING FACE [None]
